FAERS Safety Report 6048267-0 (Version None)
Quarter: 2009Q1

REPORT INFORMATION
  Report Type: 
  Country: None (occurrence: None)
  Receive Date: 20090123
  Receipt Date: 20090119
  Transmission Date: 20090719
  Serious: Yes (Hospitalization, Other)
  Sender: FDA-Public Use
  Company Number: FR-BRISTOL-MYERS SQUIBB COMPANY-14476683

PATIENT
  Age: 37 Year
  Sex: Male

DRUGS (6)
  1. ABILIFY [Suspect]
     Dosage: STARTED AS 5MG AND INCREASED TO 20MG.
     Dates: start: 20080610
  2. HALOPERIDOL DECANOATE [Suspect]
     Dosage: STARTED AS PER OS AND CHANGED TO IV
     Route: 042
     Dates: end: 20080928
  3. LEPTICUR [Suspect]
     Dates: start: 20070601, end: 20081007
  4. LOXAPAC [Suspect]
     Dates: start: 20070601, end: 20080910
  5. TEGRETOL [Suspect]
     Dates: start: 20081218
  6. XATRAL LP [Concomitant]

REACTIONS (19)
  - AGITATION [None]
  - CACHEXIA [None]
  - CATATONIA [None]
  - CONVULSION [None]
  - COORDINATION ABNORMAL [None]
  - DYSKINESIA [None]
  - DYSPHAGIA [None]
  - EXTRAPYRAMIDAL DISORDER [None]
  - HALLUCINATIONS, MIXED [None]
  - HYPERTHERMIA [None]
  - HYPOTONIA [None]
  - INCREASED BRONCHIAL SECRETION [None]
  - PYREXIA [None]
  - RESPIRATORY DISTRESS [None]
  - RHABDOMYOLYSIS [None]
  - SALIVARY HYPERSECRETION [None]
  - SOMNOLENCE [None]
  - TREMOR [None]
  - URINARY RETENTION [None]
